FAERS Safety Report 10483595 (Version 2)
Quarter: 2014Q4

REPORT INFORMATION
  Report Type: Spontaneous
  Country: VN (occurrence: VN)
  Receive Date: 20140930
  Receipt Date: 20141210
  Transmission Date: 20150528
  Serious: Yes (Other)
  Sender: FDA-Public Use
  Company Number: VN-JNJFOC-20140922925

PATIENT
  Age: 45 Year
  Sex: Male
  Weight: 70 kg

DRUGS (1)
  1. REMICADE [Suspect]
     Active Substance: INFLIXIMAB
     Indication: ANKYLOSING SPONDYLITIS
     Route: 042
     Dates: start: 20140709

REACTIONS (1)
  - Red blood cell sedimentation rate increased [Recovered/Resolved]
